FAERS Safety Report 25995895 (Version 2)
Quarter: 2025Q4

REPORT INFORMATION
  Report Type: Report from Study
  Country: BR (occurrence: BR)
  Receive Date: 20251104
  Receipt Date: 20251114
  Transmission Date: 20260118
  Serious: Yes (Other)
  Sender: SANOFI AVENTIS
  Company Number: BR-SANOFI-02706966

PATIENT
  Age: 54 Year
  Sex: Male

DRUGS (6)
  1. DUPILUMAB [Suspect]
     Active Substance: DUPILUMAB
     Indication: Dermatitis
     Dosage: 300 MG, QOW
     Dates: end: 2023
  2. PREDNISOLONE [Suspect]
     Active Substance: PREDNISOLONE
     Indication: Dermatitis atopic
     Dosage: 3 DF, QD
     Route: 002
  3. HYDROXYZINE HYDROCHLORIDE [Concomitant]
     Active Substance: HYDROXYZINE HYDROCHLORIDE
     Indication: Dermatitis atopic
     Dosage: 1 DF, QD
     Route: 002
  4. CLARITIN [Concomitant]
     Active Substance: LORATADINE
     Indication: Dermatitis atopic
     Dosage: 1 DF, QD
     Route: 002
  5. Octifen [Concomitant]
     Indication: Intraocular pressure increased
     Dosage: UNK, QD
     Route: 031
  6. OLOPATADINE [Concomitant]
     Active Substance: OLOPATADINE
     Indication: Intraocular pressure increased
     Dosage: UNK, QD
     Route: 031

REACTIONS (4)
  - Glaucoma [Unknown]
  - Intraocular pressure increased [Not Recovered/Not Resolved]
  - Inappropriate schedule of product administration [Unknown]
  - Product use in unapproved indication [Unknown]

NARRATIVE: CASE EVENT DATE: 20250926
